FAERS Safety Report 15222543 (Version 1)
Quarter: 2018Q3

REPORT INFORMATION
  Report Type: Spontaneous
  Country: US (occurrence: US)
  Receive Date: 20180705
  Receipt Date: 20180705
  Transmission Date: 20181010
  Serious: Yes (Hospitalization)
  Sender: FDA-Public Use
  Company Number: None

PATIENT
  Age: 54 Year
  Sex: Female
  Weight: 65.6 kg

DRUGS (1)
  1. METHOXSALEN. [Suspect]
     Active Substance: METHOXSALEN
     Dates: start: 20180104

REACTIONS (2)
  - Throat tightness [None]
  - Head discomfort [None]

NARRATIVE: CASE EVENT DATE: 20180104
